FAERS Safety Report 9303824 (Version 2)
Quarter: 2013Q2

REPORT INFORMATION
  Report Type: Report from Study
  Country: FR (occurrence: FR)
  Receive Date: 20130522
  Receipt Date: 20130530
  Transmission Date: 20140414
  Serious: Yes (Other)
  Sender: FDA-Public Use
  Company Number: FR-GLAXOSMITHKLINE-B0893293A

PATIENT
  Age: 53 Year
  Sex: Female
  Weight: 96.9 kg

DRUGS (5)
  1. PAZOPANIB [Suspect]
     Indication: DESMOID TUMOUR
     Dosage: 800MG PER DAY
     Route: 048
     Dates: start: 20130430, end: 20130502
  2. LYRICA [Concomitant]
     Indication: PAIN
     Route: 048
  3. LEXOMIL [Concomitant]
     Indication: DEPRESSION
     Route: 048
  4. LYSANXIA [Concomitant]
     Indication: DEPRESSION
     Route: 048
  5. ALTEIS [Concomitant]
     Indication: HYPERTENSION
     Route: 048

REACTIONS (2)
  - Hypertension [Recovered/Resolved]
  - Nervous system disorder [Recovered/Resolved]
